FAERS Safety Report 18898097 (Version 1)
Quarter: 2021Q1

REPORT INFORMATION
  Report Type: Spontaneous
  Country: US (occurrence: US)
  Receive Date: 20210213
  Receipt Date: 20210213
  Transmission Date: 20210420
  Serious: Yes (Other)
  Sender: FDA-Public Use
  Company Number: None

PATIENT
  Age: 31 Year
  Sex: Female
  Weight: 94.5 kg

DRUGS (3)
  1. ALBUTEROL. [Concomitant]
     Active Substance: ALBUTEROL
  2. VITAMIN D [Concomitant]
     Active Substance: VITAMIN D NOS
  3. LAMOTRIGINE. [Suspect]
     Active Substance: LAMOTRIGINE
     Indication: BIPOLAR I DISORDER
     Dosage: ?          QUANTITY:1 TABLET(S);?
     Route: 048
     Dates: start: 20210128, end: 20210213

REACTIONS (5)
  - Therapy change [None]
  - Rash [None]
  - Pyrexia [None]
  - Back pain [None]
  - Sinusitis [None]

NARRATIVE: CASE EVENT DATE: 20210210
